FAERS Safety Report 5123337-X (Version None)
Quarter: 2006Q4

REPORT INFORMATION
  Report Type: 
  Country: None (occurrence: None)
  Receive Date: 20061005
  Receipt Date: 20060921
  Transmission Date: 20070319
  Serious: Yes (Hospitalization, Other)
  Sender: FDA-Public Use
  Company Number: 14859

PATIENT
  Sex: Male
  Weight: 80 kg

DRUGS (5)
  1. ACYCLOVIR [Suspect]
     Indication: ENCEPHALITIS VIRAL
     Dosage: 800 MG TID IV
     Route: 042
     Dates: start: 20060831, end: 20060905
  2. ASPIRIN [Concomitant]
  3. CEFOTAXIME [Concomitant]
  4. CODEINE PHOSPHATE [Concomitant]
  5. ACETAMINOPHEN [Concomitant]

REACTIONS (1)
  - RENAL FAILURE ACUTE [None]
